FAERS Safety Report 6494016-1 (Version None)
Quarter: 2009Q4

REPORT INFORMATION
  Report Type: 
  Country: None (occurrence: None)
  Receive Date: 20091214
  Receipt Date: 20081210
  Transmission Date: 20100525
  Serious: No
  Sender: FDA-Public Use
  Company Number: US-BRISTOL-MYERS SQUIBB COMPANY-14438766

PATIENT
  Age: 61 Year
  Sex: Female
  Weight: 75 kg

DRUGS (7)
  1. ABILIFY [Suspect]
     Indication: BIPOLAR DISORDER
     Dates: start: 20080101
  2. REMERON [Concomitant]
  3. CELEXA [Concomitant]
  4. LUVOX [Concomitant]
  5. CRESTOR [Concomitant]
  6. ENALAPRIL [Concomitant]
  7. HUMALOG [Concomitant]

REACTIONS (2)
  - ALOPECIA [None]
  - RHINORRHOEA [None]
